FAERS Safety Report 4507813-6 (Version None)
Quarter: 2004Q4

REPORT INFORMATION
  Report Type: 
  Country: None (occurrence: None)
  Receive Date: 20041123
  Receipt Date: 20041116
  Transmission Date: 20050328
  Serious: Yes (Hospitalization)
  Sender: FDA-Public Use
  Company Number: US-AMGEN-US099928

PATIENT
  Age: 90 Year
  Sex: Female

DRUGS (1)
  1. EPOGEN [Suspect]
     Indication: ANAEMIA
     Route: 058

REACTIONS (3)
  - COMA [None]
  - HIP FRACTURE [None]
  - UNRESPONSIVE TO VERBAL STIMULI [None]
